FAERS Safety Report 5509281-4 (Version None)
Quarter: 2007Q4

REPORT INFORMATION
  Report Type: 
  Country: None (occurrence: None)
  Receive Date: 20071107
  Receipt Date: 20071030
  Transmission Date: 20080405
  Serious: Yes (Other)
  Sender: FDA-Public Use
  Company Number: US-ALLERGAN-0712040US

PATIENT
  Sex: Female
  Weight: 90.703 kg

DRUGS (4)
  1. RESTASIS [Suspect]
     Indication: DRY EYE
     Dosage: 1 GTT, Q12H
     Route: 047
     Dates: start: 20061101, end: 20070611
  2. PREDNISONE [Concomitant]
     Indication: SARCOIDOSIS
     Route: 048
     Dates: start: 20070401
  3. METHOTREXATE [Concomitant]
     Indication: SARCOIDOSIS
     Route: 048
     Dates: start: 20070501
  4. TEARS [Concomitant]
     Dosage: UNK, Q2HR
     Route: 047

REACTIONS (3)
  - KERATITIS HERPETIC [None]
  - LACRIMATION INCREASED [None]
  - OCULAR HYPERAEMIA [None]
